FAERS Safety Report 5424903-4 (Version None)
Quarter: 2007Q3

REPORT INFORMATION
  Report Type: 
  Country: None (occurrence: None)
  Receive Date: 20070824
  Receipt Date: 20070813
  Transmission Date: 20080115
  Serious: Yes (Hospitalization, Other)
  Sender: FDA-Public Use
  Company Number: US-ELI_LILLY_AND_COMPANY-US200708003030

PATIENT
  Age: 81 Year
  Sex: Female

DRUGS (5)
  1. FORTEO [Suspect]
     Indication: BONE DISORDER
     Dosage: UNK, UNK
     Dates: start: 20040101, end: 20050101
  2. FORTEO [Suspect]
     Dosage: UNK, UNK
     Dates: start: 20070716
  3. DIAZEPAM [Concomitant]
  4. AMITRIPTYLINE HCL [Concomitant]
     Indication: SLEEP DISORDER THERAPY
     Dosage: AT BEDTIME
  5. VICODIN [Concomitant]
     Indication: PAIN
     Dosage: UNK, AS NEEDED

REACTIONS (4)
  - FALL [None]
  - FRACTURE [None]
  - MOBILITY DECREASED [None]
  - PELVIC FRACTURE [None]
